FAERS Safety Report 13581692 (Version 1)
Quarter: 2017Q2

REPORT INFORMATION
  Report Type: Spontaneous
  Country: US (occurrence: US)
  Receive Date: 20170525
  Receipt Date: 20170525
  Transmission Date: 20170830
  Serious: Yes (Other)
  Sender: FDA-Public Use
  Company Number: US-BECTON DICKINSON-2016BDN00353

PATIENT

DRUGS (1)
  1. CHLORAPREP WITH TINT [Suspect]
     Active Substance: CHLORHEXIDINE GLUCONATE\ISOPROPYL ALCOHOL
     Indication: INFECTION PROPHYLAXIS
     Dosage: UNK, ONCE
     Route: 061
     Dates: start: 20120201, end: 20120201

REACTIONS (3)
  - Injury corneal [Unknown]
  - Chemical eye injury [Unknown]
  - Drug administered at inappropriate site [Recovered/Resolved]

NARRATIVE: CASE EVENT DATE: 20120201
